FAERS Safety Report 8831835 (Version 1)
Quarter: 2012Q4

REPORT INFORMATION
  Report Type: 
  Country: US (occurrence: US)
  Receive Date: 20121009
  Receipt Date: 20121009
  Transmission Date: 20130627
  Serious: Yes (Other)
  Sender: FDA-Public Use
  Company Number: PHEH2012US017621

PATIENT
  Age: 59 Year
  Sex: Female
  Weight: 63.49 kg

DRUGS (18)
  1. GILENYA [Suspect]
     Indication: MULTIPLE SCLEROSIS
     Dosage: 0.5 mg, QD
     Route: 048
     Dates: start: 20120905
  2. AVONEX [Suspect]
     Dosage: 25 g, UNK
     Dates: start: 20080527, end: 20120910
  3. FAMPRIDINE [Concomitant]
     Dosage: 10 mg, BID
     Route: 048
     Dates: start: 20120801, end: 20120910
  4. MOBIC [Concomitant]
     Dosage: 15 mg, UNK
     Route: 048
  5. NEURONTIN [Concomitant]
     Dosage: 1200 mg, TID
     Route: 048
  6. KLONOPIN [Concomitant]
     Dosage: 1 mg, at bedtime
     Route: 048
  7. REQUIP [Concomitant]
     Dosage: 2 mg, BID
     Route: 048
  8. LOMOTIL [Concomitant]
     Dosage: 1 DF, QID
     Route: 048
  9. LIPITOR [Concomitant]
     Dosage: 20 mg, daily
     Route: 048
  10. ESTRACE [Concomitant]
     Dosage: 1 mg, daily
     Route: 048
  11. CELEXA [Concomitant]
     Indication: MOOD ALTERED
     Dosage: 20 mg, daily
     Route: 048
  12. VITAMIN D3 [Concomitant]
     Dosage: 1000 U, daily
     Route: 048
  13. OMEGA 3 FISH OIL [Concomitant]
     Dosage: 1 DF, daily
     Route: 048
  14. MEDROXYPROGESTERONE [Concomitant]
     Dosage: 2.5 mg, daily
     Route: 048
  15. ASPIRIN [Concomitant]
     Dosage: 81 mg, daily
  16. LEVOTHYROXINE SODIUM [Concomitant]
     Dosage: 75 ug, daily
  17. ZANAFLEX [Concomitant]
     Dosage: 4 mg, at bedtime
     Route: 048
  18. AMBIEN [Concomitant]
     Dosage: 10 mg, PRN
     Route: 048

REACTIONS (17)
  - Multiple sclerosis [Unknown]
  - Central nervous system lesion [Unknown]
  - Muscle spasticity [Unknown]
  - Muscular weakness [Unknown]
  - Gait disturbance [Unknown]
  - General physical health deterioration [Unknown]
  - Pain in extremity [Unknown]
  - Cognitive disorder [Unknown]
  - Somnolence [Not Recovered/Not Resolved]
  - Fatigue [Not Recovered/Not Resolved]
  - Blood pressure decreased [Unknown]
  - Heart rate decreased [Not Recovered/Not Resolved]
  - Blood pressure increased [Not Recovered/Not Resolved]
  - Thrombocytopenia [Unknown]
  - Fall [Unknown]
  - Diarrhoea [Unknown]
  - Dizziness [Unknown]
